FAERS Safety Report 14581261 (Version 1)
Quarter: 2018Q1

REPORT INFORMATION
  Report Type: Report from Study
  Country: CA (occurrence: CA)
  Receive Date: 20180228
  Receipt Date: 20180228
  Transmission Date: 20180509
  Serious: Yes (Other)
  Sender: FDA-Public Use
  Company Number: CA-ROCHE-1735293

PATIENT
  Age: 38 Year
  Sex: Female
  Weight: 113 kg

DRUGS (17)
  1. ACTEMRA [Suspect]
     Active Substance: TOCILIZUMAB
     Indication: RHEUMATOID ARTHRITIS
     Route: 058
     Dates: start: 20171130, end: 20180124
  2. ATIVAN [Concomitant]
     Active Substance: LORAZEPAM
  3. DILAUDID [Concomitant]
     Active Substance: HYDROMORPHONE HYDROCHLORIDE
     Dosage: 2 DOSES (AT 18 HOURS AND 20 HOURS (TOTAL OF 4CO IN 2 HOURS).
     Route: 065
  4. CYMBALTA [Concomitant]
     Active Substance: DULOXETINE HYDROCHLORIDE
  5. BENADRYL [Suspect]
     Active Substance: DIPHENHYDRAMINE HYDROCHLORIDE
     Indication: PRODUCT USED FOR UNKNOWN INDICATION
     Route: 042
     Dates: start: 20160525
  6. NEURONTIN [Concomitant]
     Active Substance: GABAPENTIN
  7. TYLENOL [Concomitant]
     Active Substance: ACETAMINOPHEN
     Route: 048
     Dates: start: 20161014
  8. ACTEMRA [Suspect]
     Active Substance: TOCILIZUMAB
     Indication: RHEUMATOID ARTHRITIS
     Route: 042
     Dates: start: 20160330, end: 20171013
  9. BENADRYL [Suspect]
     Active Substance: DIPHENHYDRAMINE HYDROCHLORIDE
     Route: 042
  10. TYLENOL [Concomitant]
     Active Substance: ACETAMINOPHEN
     Route: 048
     Dates: start: 20160525, end: 20160812
  11. PREDNISONE. [Concomitant]
     Active Substance: PREDNISONE
  12. CRESTOR [Concomitant]
     Active Substance: ROSUVASTATIN CALCIUM
  13. INSULIN [Concomitant]
     Active Substance: INSULIN NOS
  14. PANTOLOC [Concomitant]
     Active Substance: PANTOPRAZOLE SODIUM
  15. TRAZODONE [Concomitant]
     Active Substance: TRAZODONE HYDROCHLORIDE
  16. OLMETEC [Concomitant]
     Active Substance: OLMESARTAN MEDOXOMIL
  17. FLEXERIL [Concomitant]
     Active Substance: CYCLOBENZAPRINE HYDROCHLORIDE

REACTIONS (24)
  - Asthenia [Unknown]
  - Fatigue [Unknown]
  - Pain [Not Recovered/Not Resolved]
  - Nausea [Recovering/Resolving]
  - Skin papilloma [Not Recovered/Not Resolved]
  - Pyrexia [Recovered/Resolved]
  - Heart rate increased [Unknown]
  - Heart rate increased [Unknown]
  - Limb injury [Unknown]
  - Oropharyngeal pain [Not Recovered/Not Resolved]
  - Headache [Recovered/Resolved]
  - Nausea [Recovered/Resolved]
  - Oedema peripheral [Recovering/Resolving]
  - Contusion [Not Recovered/Not Resolved]
  - Tooth abscess [Not Recovered/Not Resolved]
  - Drug ineffective [Unknown]
  - Angina pectoris [Recovered/Resolved]
  - Weight decreased [Not Recovered/Not Resolved]
  - Rash [Recovered/Resolved]
  - Blood pressure systolic abnormal [Unknown]
  - Sense of oppression [Recovered/Resolved]
  - Erythema [Not Recovered/Not Resolved]
  - Oropharyngeal pain [Recovered/Resolved]
  - Arthralgia [Unknown]

NARRATIVE: CASE EVENT DATE: 20160330
